FAERS Safety Report 24636507 (Version 1)
Quarter: 2024Q4

REPORT INFORMATION
  Report Type: Spontaneous
  Country: US (occurrence: US)
  Receive Date: 20241119
  Receipt Date: 20241119
  Transmission Date: 20250115
  Serious: Yes (Other)
  Sender: HIKMA
  Company Number: US-HIKMA PHARMACEUTICALS USA INC.-US-H14001-24-10117

PATIENT
  Age: 49 Year
  Sex: Male

DRUGS (7)
  1. DEXAMETHASONE [Suspect]
     Active Substance: DEXAMETHASONE
     Indication: Back pain
     Dosage: 5 MILLIGRAM, 0.5 ML OF DEXAMETHASONE 10 MG/ML, FOR A TOTAL OF 5 MG OF DEXAMETHASONE, MIXED WITH 2.5
     Route: 008
  2. DEXAMETHASONE [Suspect]
     Active Substance: DEXAMETHASONE
     Indication: Radiculopathy
  3. LOPERAMIDE [Concomitant]
     Active Substance: LOPERAMIDE
     Indication: Product used for unknown indication
     Dosage: UNK
     Route: 065
  4. MELOXICAM [Concomitant]
     Active Substance: MELOXICAM
     Indication: Product used for unknown indication
     Dosage: UNK
     Route: 065
  5. SODIUM CHLORIDE [Concomitant]
     Active Substance: SODIUM CHLORIDE
     Indication: Product used for unknown indication
     Dosage: 2.5 MILLILITER, ~ 0.5 ML OF DEXAMETHASONE 10 MG/ML, FOR A TOTAL OF 5 MG OF DEXAMETHASONE, MIXED WITH
     Route: 065
  6. OMEPRAZOLE [Concomitant]
     Active Substance: OMEPRAZOLE
     Indication: Product used for unknown indication
     Dosage: UNK
     Route: 065
  7. SILDENAFIL [Concomitant]
     Active Substance: SILDENAFIL
     Indication: Product used for unknown indication
     Dosage: UNK
     Route: 065

REACTIONS (5)
  - Anorgasmia [Recovered/Resolved]
  - Paraesthesia [Recovered/Resolved]
  - Back pain [Recovered/Resolved]
  - Radiculopathy [Recovered/Resolved]
  - Condition aggravated [Recovered/Resolved]
